FAERS Safety Report 13204641 (Version 1)
Quarter: 2017Q1

REPORT INFORMATION
  Report Type: Spontaneous
  Country: US (occurrence: US)
  Receive Date: 20170208
  Receipt Date: 20170208
  Transmission Date: 20170428
  Serious: Yes (Death)
  Sender: FDA-Public Use
  Company Number: None

PATIENT
  Age: 48 Year
  Sex: Female
  Weight: 40.4 kg

DRUGS (2)
  1. OXYCODONE HYDROCHLORIDE. [Concomitant]
     Active Substance: OXYCODONE HYDROCHLORIDE
  2. CARBOPLATIN 450MG/45ML VIAL HOSPIRA [Suspect]
     Active Substance: CARBOPLATIN
     Indication: LUNG CARCINOMA CELL TYPE UNSPECIFIED STAGE IV
     Route: 042
     Dates: start: 20150928, end: 20170112

REACTIONS (6)
  - Cardiac arrest [None]
  - Anaphylactic reaction [None]
  - Sepsis [None]
  - Brain injury [None]
  - Neutropenia [None]
  - Pneumonia [None]

NARRATIVE: CASE EVENT DATE: 20170112
